FAERS Safety Report 8322968-3 (Version None)
Quarter: 2012Q2

REPORT INFORMATION
  Report Type: 
  Country: None (occurrence: None)
  Receive Date: 20120430
  Receipt Date: 20120425
  Transmission Date: 20120825
  Serious: Yes (Other)
  Sender: FDA-Public Use
  Company Number: US-TEVA-335167USA

PATIENT
  Sex: Female
  Weight: 68.1 kg

DRUGS (4)
  1. VITAMIN D [Concomitant]
     Indication: VITAMIN SUPPLEMENTATION
     Route: 048
  2. MAGNESIUM [Concomitant]
     Indication: VITAMIN SUPPLEMENTATION
     Route: 048
  3. VITAMIN B COMPLEX CAP [Concomitant]
     Indication: VITAMIN SUPPLEMENTATION
     Route: 048
  4. COPAXONE [Suspect]
     Indication: MULTIPLE SCLEROSIS
     Dosage: 20 MILLIGRAM;
     Route: 058
     Dates: start: 20120101

REACTIONS (3)
  - BURNING SENSATION MUCOSAL [None]
  - OEDEMA MOUTH [None]
  - DRY MOUTH [None]
